FAERS Safety Report 8391009-4 (Version None)
Quarter: 2012Q2

REPORT INFORMATION
  Report Type: 
  Country: None (occurrence: None)
  Receive Date: 20120521
  Receipt Date: 20120511
  Transmission Date: 20120825
  Serious: Yes (Life-Threatening)
  Sender: FDA-Public Use
  Company Number: 7132284

PATIENT
  Age: 15 Year
  Sex: Male

DRUGS (2)
  1. SERTRALINE HYDROCHLORIDE [Concomitant]
  2. LEVOTHYROXINE SODIUM [Suspect]
     Indication: HYPOTHYROIDISM
     Dosage: 250 MCG (25 MCG,10 IN 1 D) ORAL
     Route: 048
     Dates: start: 20120429, end: 20120429

REACTIONS (2)
  - APPARENT LIFE THREATENING EVENT [None]
  - SUICIDE ATTEMPT [None]
